FAERS Safety Report 8539673-0 (Version None)
Quarter: 2012Q3

REPORT INFORMATION
  Report Type: 
  Country: None (occurrence: None)
  Receive Date: 20120726
  Receipt Date: 20110720
  Transmission Date: 20120928
  Serious: No
  Sender: FDA-Public Use
  Company Number: US-ASTRAZENECA-2007UW28988

PATIENT
  Age: 19075 Day
  Sex: Female
  Weight: 88.5 kg

DRUGS (30)
  1. SEROQUEL [Suspect]
     Indication: PSYCHOTIC DISORDER
     Dosage: 25-600 MG
     Route: 048
     Dates: start: 20020313
  2. SEROQUEL [Suspect]
     Dosage: 25MG, 100MG, 200MG, 300MG
     Route: 048
     Dates: start: 20020301, end: 20040901
  3. LEXAPRO [Concomitant]
     Indication: AFFECTIVE DISORDER
     Dates: start: 20030101
  4. SEROQUEL [Suspect]
     Dosage: 25MG, 100MG, 200MG, 300MG
     Route: 048
     Dates: start: 20020301, end: 20040901
  5. HYDROCODONE BITARTRATE AND ACETAMINOPHEN [Concomitant]
     Indication: PAIN
     Dosage: 7.5/750 MG
  6. NEURONTIN [Concomitant]
     Indication: MOOD ALTERED
     Dates: end: 20040428
  7. NAFTIN [Concomitant]
  8. DIFLUCAN [Concomitant]
     Dates: start: 20041129
  9. PAXIL CR [Concomitant]
     Dosage: 25 MG AT NIGHT, 37.5 MG AT NIGHT
     Dates: end: 20021211
  10. WELLBUTRIN SR [Concomitant]
     Dates: start: 20020101
  11. KENALOG-ACETONIDE [Concomitant]
     Dosage: 40 MG-80 MG
     Route: 030
  12. SEROQUEL [Suspect]
     Indication: SLEEP DISORDER
     Dosage: 25-600 MG
     Route: 048
     Dates: start: 20020313
  13. SEROQUEL [Suspect]
     Indication: ANXIETY
     Dosage: 25-600 MG
     Route: 048
     Dates: start: 20020313
  14. EFFEXOR XR [Concomitant]
     Indication: DEPRESSION
     Dosage: 75-150 MG
     Dates: start: 20020313, end: 20030917
  15. DARVOCET [Concomitant]
  16. WELLBUTRIN SR [Concomitant]
     Dosage: 150 MG EVERY MORNING, 200 MG EVERY MORNING, 200 MG TWO TIMES A DAY
  17. LEXAPRO [Concomitant]
     Dosage: 10 MG EVERY MORNING, 20 MG DAILY, 20 MG TWO TABLET EVERY MORNING, 20 MG TWO TABLET AT NIGHT
     Dates: end: 20050914
  18. AMBIEN [Concomitant]
     Dosage: 10 MG 1 TO 2 AT NIGHT, 10 MG TWO TIMES A DAY
  19. BETAMETHASONE [Concomitant]
  20. NEURONTIN [Concomitant]
     Indication: DISCOMFORT
     Dates: end: 20040428
  21. DESPO-MEDROL [Concomitant]
     Dosage: 40 MG/ML
  22. SEROQUEL [Suspect]
     Indication: NERVOUSNESS
     Dosage: 25-600 MG
     Route: 048
     Dates: start: 20020313
  23. SEROQUEL [Suspect]
     Dosage: 25MG, 100MG, 200MG, 300MG
     Route: 048
     Dates: start: 20020301, end: 20040901
  24. VERSED [Concomitant]
     Dosage: STRENGTH - 5 MG/ML
  25. SEROQUEL [Suspect]
     Dosage: 25MG, 100MG, 200MG, 300MG
     Route: 048
     Dates: start: 20020301, end: 20040901
  26. PAXIL CR [Concomitant]
     Dates: start: 20020501, end: 20021101
  27. SILVADENE [Concomitant]
     Indication: THERMAL BURN
  28. DIFLUCAN [Concomitant]
     Dosage: 150 MG PO TIMES ONE REPEAT ONCE PRN
     Route: 048
     Dates: start: 20050330
  29. PLENDIL [Concomitant]
  30. CLARINEX [Concomitant]

REACTIONS (7)
  - BACK INJURY [None]
  - WEIGHT INCREASED [None]
  - HYPERGLYCAEMIA [None]
  - FACET JOINT SYNDROME [None]
  - BLOOD GLUCOSE ABNORMAL [None]
  - BACK PAIN [None]
  - TYPE 2 DIABETES MELLITUS [None]
